FAERS Safety Report 8112325 (Version 3)
Quarter: 2012Q4

REPORT INFORMATION
  Report Type: 
  Country: US (occurrence: US)
  Receive Date: 20110830
  Receipt Date: 20121019
  Transmission Date: 20130627
  Serious: Yes (Other)
  Sender: FDA-Public Use
  Company Number: US-US-EMD SERONO, INC.-7078551

PATIENT
  Age: 36 None
  Sex: Female
  Weight: 108 kg

DRUGS (2)
  1. REBIF [Suspect]
     Indication: RELAPSING-REMITTING MULTIPLE SCLEROSIS
     Route: 058
     Dates: start: 20110602, end: 20110825
  2. REBIF [Suspect]
     Route: 058
     Dates: start: 20110829

REACTIONS (3)
  - Conjunctival haemorrhage [Recovered/Resolved]
  - Hepatic enzyme increased [Unknown]
  - Headache [Not Recovered/Not Resolved]
